FAERS Safety Report 17211976 (Version 1)
Quarter: 2019Q4

REPORT INFORMATION
  Report Type: Spontaneous
  Country: US (occurrence: US)
  Receive Date: 20191230
  Receipt Date: 20191230
  Transmission Date: 20200122
  Serious: No
  Sender: FDA-Public Use
  Company Number: US-ALLERGAN-1937482US

PATIENT
  Sex: Female

DRUGS (2)
  1. BYSTOLIC [Suspect]
     Active Substance: NEBIVOLOL HYDROCHLORIDE
     Indication: HYPERTENSION
     Dosage: ACTUAL: DOUBLED DAILY DOSAGE
     Route: 048
  2. BENEFIBER [Concomitant]
     Active Substance: STARCH, WHEAT

REACTIONS (4)
  - Wrong technique in product usage process [Unknown]
  - Therapeutic response decreased [Unknown]
  - Abdominal pain lower [Recovered/Resolved]
  - Incorrect dose administered [Unknown]

NARRATIVE: CASE EVENT DATE: 201909
